FAERS Safety Report 25509290 (Version 1)
Quarter: 2025Q3

REPORT INFORMATION
  Report Type: Spontaneous
  Country: US (occurrence: None)
  Receive Date: 20250702
  Receipt Date: 20250702
  Transmission Date: 20251021
  Serious: No
  Sender: FDA-CTU
  Company Number: None

PATIENT
  Sex: Female

DRUGS (1)
  1. TREMFYA [Suspect]
     Active Substance: GUSELKUMAB
     Indication: Crohn^s disease
     Route: 058
     Dates: start: 20250515

REACTIONS (9)
  - Headache [None]
  - Oral discomfort [None]
  - Throat irritation [None]
  - Diarrhoea [None]
  - Rash [None]
  - Insomnia [None]
  - Arthralgia [None]
  - Arthralgia [None]
  - Alopecia [None]
